FAERS Safety Report 8702160 (Version 2)
Quarter: 2013Q1

REPORT INFORMATION
  Report Type: Report from Study
  Country: JP (occurrence: JP)
  Receive Date: 20120803
  Receipt Date: 20130213
  Transmission Date: 20140127
  Serious: Yes (Other)
  Sender: FDA-Public Use
  Company Number: JP-009507513-2012SP020573

PATIENT
  Age: 39 Year
  Sex: Male
  Weight: 81 kg

DRUGS (10)
  1. PEGINTRON [Suspect]
     Indication: CHRONIC HEPATITIS C
     Dosage: 1.5 ?G/KG, QW
     Route: 058
     Dates: start: 20120104, end: 20120613
  2. REBETOL [Suspect]
     Indication: CHRONIC HEPATITIS C
     Dosage: 1000 MG, QD
     Route: 048
     Dates: start: 20120104, end: 20120613
  3. TELAVIC [Suspect]
     Indication: CHRONIC HEPATITIS C
     Dosage: 2250 MG, QD
     Route: 048
     Dates: start: 20120104, end: 20120328
  4. LIVALO [Concomitant]
     Indication: HYPERLIPIDAEMIA
     Dosage: 2 MG, QD
     Route: 048
  5. EPADEL [Concomitant]
     Indication: HYPERLIPIDAEMIA
     Dosage: 1800 MG, QD
     Route: 048
  6. CLARITIN REDITABS [Concomitant]
     Indication: PROPHYLAXIS
     Dosage: 10 MG, QD,FORMULATION:POR
     Route: 048
  7. CLARITIN REDITABS [Concomitant]
     Route: 048
  8. ETIZOLAM [Concomitant]
     Indication: INSOMNIA
     Dosage: FORMULATION POR
     Route: 048
  9. EPADEL S [Concomitant]
     Indication: HYPERLIPIDAEMIA
     Route: 048
  10. ETIZOLAM [Concomitant]
     Indication: INSOMNIA
     Route: 048

REACTIONS (3)
  - Hyperuricaemia [Not Recovered/Not Resolved]
  - Anaemia [Not Recovered/Not Resolved]
  - Platelet count decreased [None]
